FAERS Safety Report 16452684 (Version 1)
Quarter: 2019Q2

REPORT INFORMATION
  Report Type: Spontaneous
  Country: FR (occurrence: FR)
  Receive Date: 20190619
  Receipt Date: 20190619
  Transmission Date: 20190711
  Serious: Yes (Hospitalization)
  Sender: FDA-Public Use
  Company Number: FR-TEVA-2019-FR-1065398

PATIENT
  Age: 45 Year
  Sex: Female
  Weight: 102 kg

DRUGS (5)
  1. PROPRANOLOL [Suspect]
     Active Substance: PROPRANOLOL HYDROCHLORIDE
     Indication: SUICIDE ATTEMPT
     Dosage: 1000 MILLIGRAM
     Route: 048
     Dates: start: 20180807, end: 20180807
  2. LORAZEPAM. [Suspect]
     Active Substance: LORAZEPAM
     Indication: SUICIDE ATTEMPT
     Dosage: 15 MILLIGRAM
     Route: 048
     Dates: start: 20180807, end: 20180807
  3. DIAZEPAM. [Suspect]
     Active Substance: DIAZEPAM
     Indication: SUICIDE ATTEMPT
     Dosage: 100 MILLIGRAM
     Route: 048
     Dates: start: 20180807, end: 20180807
  4. SERESTA 10 MG, COMPRIM? [Suspect]
     Active Substance: OXAZEPAM
     Indication: SUICIDE ATTEMPT
     Dosage: 90 DOSAGE FORMS
     Route: 048
     Dates: start: 20180807, end: 20180807
  5. QUETIAPINE. [Suspect]
     Active Substance: QUETIAPINE
     Indication: SUICIDE ATTEMPT
     Dosage: 9 GRAM
     Route: 048
     Dates: start: 20180807, end: 20180807

REACTIONS (2)
  - Toxicity to various agents [Recovered/Resolved]
  - Coma [Recovered/Resolved]

NARRATIVE: CASE EVENT DATE: 20180807
